FAERS Safety Report 6414764-9 (Version None)
Quarter: 2009Q4

REPORT INFORMATION
  Report Type: 
  Country: None (occurrence: None)
  Receive Date: 20091026
  Receipt Date: 20091026
  Transmission Date: 20100525
  Serious: No
  Sender: FDA-Public Use
  Company Number: None

PATIENT
  Age: 59 Year
  Sex: Female

DRUGS (2)
  1. LEVAQUIN [Suspect]
     Indication: EAR INFECTION
     Dosage: 1 TABLES TWICE A DAY
     Dates: start: 20091010, end: 20091016
  2. LEVAQUIN [Suspect]
     Indication: SINUSITIS
     Dosage: 1 TABLES TWICE A DAY
     Dates: start: 20091010, end: 20091016

REACTIONS (7)
  - ABNORMAL DREAMS [None]
  - ARTHRALGIA [None]
  - DIARRHOEA [None]
  - INITIAL INSOMNIA [None]
  - JOINT STIFFNESS [None]
  - TENDON DISORDER [None]
  - TENDON PAIN [None]
